FAERS Safety Report 8888485 (Version 2)
Quarter: 2012Q4

REPORT INFORMATION
  Report Type: 
  Country: US (occurrence: US)
  Receive Date: 20121106
  Receipt Date: 20121129
  Transmission Date: 20130627
  Serious: Yes (Death, Hospitalization)
  Sender: FDA-Public Use
  Company Number: US-GILEAD-2012-0062684

PATIENT
  Sex: Male

DRUGS (2)
  1. LETAIRIS [Suspect]
     Indication: PULMONARY ARTERIAL HYPERTENSION
     Dosage: 5 mg, QD
     Route: 048
     Dates: start: 20080201
  2. REVATIO [Concomitant]

REACTIONS (4)
  - Pulmonary arterial hypertension [Unknown]
  - Haematemesis [Unknown]
  - Pyrexia [Unknown]
  - Death [Fatal]
